FAERS Safety Report 22248207 (Version 2)
Quarter: 2023Q2

REPORT INFORMATION
  Report Type: Spontaneous
  Country: IT (occurrence: IT)
  Receive Date: 20230425
  Receipt Date: 20230523
  Transmission Date: 20230722
  Serious: Yes (Other)
  Sender: FDA-Public Use
  Company Number: None

PATIENT
  Sex: Male

DRUGS (2)
  1. IMATINIB [Suspect]
     Active Substance: IMATINIB
     Indication: Philadelphia positive chronic myeloid leukaemia
     Dosage: 3 DOSAGE FORM, QD
     Route: 065
     Dates: start: 202102
  2. IMATINIB [Suspect]
     Active Substance: IMATINIB
     Dosage: 300 MG
     Route: 065
     Dates: start: 202102

REACTIONS (8)
  - Myalgia [Unknown]
  - Muscle spasms [Unknown]
  - Dyslipidaemia [Unknown]
  - Carotid artery restenosis [Unknown]
  - Peripheral vascular disorder [Unknown]
  - Hypertension [Unknown]
  - Drug intolerance [Unknown]
  - Intervertebral disc protrusion [Unknown]
